FAERS Safety Report 6980774-6 (Version None)
Quarter: 2010Q3

REPORT INFORMATION
  Report Type: 
  Country: None (occurrence: None)
  Receive Date: 20100910
  Receipt Date: 20100910
  Transmission Date: 20110219
  Serious: Yes (Hospitalization)
  Sender: FDA-Public Use
  Company Number: None

PATIENT
  Age: 60 Year
  Sex: Female
  Weight: 72.5755 kg

DRUGS (1)
  1. EVISTA [Suspect]
     Indication: OSTEOPOROSIS
     Dosage: 60 MG. 1 DAILY 047
     Dates: start: 20081201, end: 20100801

REACTIONS (8)
  - ABDOMINAL DISTENSION [None]
  - CHEST PAIN [None]
  - FLATULENCE [None]
  - INCREASED APPETITE [None]
  - MIGRAINE [None]
  - PAIN [None]
  - RASH [None]
  - WEIGHT INCREASED [None]
